FAERS Safety Report 4685922-9 (Version None)
Quarter: 2005Q2

REPORT INFORMATION
  Report Type: 
  Country: None (occurrence: None)
  Receive Date: 20050606
  Receipt Date: 20050524
  Transmission Date: 20051028
  Serious: Yes (Hospitalization, Other)
  Sender: FDA-Public Use
  Company Number: HQWYE988826MAY05

PATIENT
  Age: 47 Year
  Sex: Female

DRUGS (20)
  1. RAPAMUNE [Suspect]
     Indication: PROPHYLAXIS AGAINST TRANSPLANT REJECTION
     Dosage: 5 MG 1X PER 1 DAY, ORAL
     Route: 048
     Dates: start: 20050119
  2. CELLCEPT [Suspect]
  3. PREDNISONE [Suspect]
     Dosage: 5 MG 1X PER 1 DAY, ORAL
     Route: 048
  4. TACROLIMUS (TACROLIMUS,) [Suspect]
     Dosage: ORAL
     Route: 048
  5. ZENAPAX [Suspect]
     Dosage: ORAL
     Route: 048
  6. NORVASC [Concomitant]
  7. LOPRESSOR [Concomitant]
  8. CLONIDINE [Concomitant]
  9. DILANTIN [Concomitant]
  10. LAMICTAL [Concomitant]
  11. ELAVIL [Concomitant]
  12. ASPIRIN [Concomitant]
  13. VALCYTE [Concomitant]
  14. NYSTATIN [Concomitant]
  15. PEPCID [Concomitant]
  16. LIPITOR [Concomitant]
  17. DARVOCET-N 50 [Concomitant]
  18. METOCLOPRAMIDE [Concomitant]
  19. IMODIUM [Concomitant]
  20. MYCOPHENOLIC ACID [Concomitant]

REACTIONS (16)
  - ANOREXIA [None]
  - BLOOD CREATININE INCREASED [None]
  - BLOOD SODIUM DECREASED [None]
  - BLOOD UREA INCREASED [None]
  - CHEST PAIN [None]
  - COLITIS VIRAL [None]
  - CONSTIPATION [None]
  - DEHYDRATION [None]
  - DIABETES MELLITUS INADEQUATE CONTROL [None]
  - GASTRITIS EROSIVE [None]
  - GASTROENTERITIS [None]
  - HAEMATOCRIT DECREASED [None]
  - HAEMOGLOBIN DECREASED [None]
  - INTESTINAL DILATATION [None]
  - PLATELET COUNT INCREASED [None]
  - WHITE BLOOD CELL COUNT DECREASED [None]
